FAERS Safety Report 17955888 (Version 5)
Quarter: 2021Q1

REPORT INFORMATION
  Report Type: Spontaneous
  Country: US (occurrence: US)
  Receive Date: 20200629
  Receipt Date: 20210108
  Transmission Date: 20210419
  Serious: Yes (Other)
  Sender: FDA-Public Use
  Company Number: US-GILEAD-2020-0476569

PATIENT
  Age: 55 Year
  Sex: Male

DRUGS (3)
  1. TRUVADA [Suspect]
     Active Substance: EMTRICITABINE\TENOFOVIR DISOPROXIL FUMARATE
     Indication: HIV INFECTION
     Dosage: UNK
     Route: 048
     Dates: start: 200804, end: 200912
  2. VIREAD [Suspect]
     Active Substance: TENOFOVIR DISOPROXIL FUMARATE
     Indication: HIV INFECTION
     Dosage: UNK
     Route: 048
     Dates: start: 200512, end: 200708
  3. TRUVADA [Suspect]
     Active Substance: EMTRICITABINE\TENOFOVIR DISOPROXIL FUMARATE
     Dosage: UNK
     Route: 048
     Dates: start: 2004, end: 2006

REACTIONS (9)
  - Acute kidney injury [Not Recovered/Not Resolved]
  - Tooth loss [Not Recovered/Not Resolved]
  - Multiple fractures [Unknown]
  - Osteonecrosis [Unknown]
  - Renal injury [Unknown]
  - Osteoporosis [Not Recovered/Not Resolved]
  - Ankle fracture [Recovered/Resolved]
  - Bone density decreased [Not Recovered/Not Resolved]
  - Bone loss [Unknown]

NARRATIVE: CASE EVENT DATE: 2012
